FAERS Safety Report 9063355 (Version 1)
Quarter: 2013Q1

REPORT INFORMATION
  Report Type: Spontaneous
  Country: MY (occurrence: MY)
  Receive Date: 20130213
  Receipt Date: 20130213
  Transmission Date: 20140127
  Serious: Yes (Other)
  Sender: FDA-Public Use
  Company Number: MY-ABBOTT-13P-101-1049327-00

PATIENT
  Sex: 0

DRUGS (1)
  1. LIPANTHYL [Suspect]
     Indication: BLOOD TRIGLYCERIDES INCREASED
     Route: 048

REACTIONS (1)
  - Glaucoma [Recovered/Resolved]
